FAERS Safety Report 8081665-2 (Version None)
Quarter: 2012Q1

REPORT INFORMATION
  Report Type: 
  Country: None (occurrence: None)
  Receive Date: 20120130
  Receipt Date: 20120117
  Transmission Date: 20120608
  Serious: Yes (Hospitalization)
  Sender: FDA-Public Use
  Company Number: ES-CELGENEUS-144-50794-12011511

PATIENT
  Sex: Female
  Weight: 54 kg

DRUGS (13)
  1. CALCIUM [Concomitant]
     Route: 048
  2. ACETAMINOPHEN [Concomitant]
     Indication: PAIN
     Dosage: 1 GRAM
     Route: 048
  3. GLIPIZIDE [Concomitant]
     Route: 048
  4. BETAHISTINE [Concomitant]
     Indication: DIZZINESS
     Route: 048
  5. VIDAZA [Suspect]
     Indication: MYELODYSPLASTIC SYNDROME
     Dosage: 111 MILLIGRAM
     Route: 065
     Dates: start: 20110921
  6. OMEPRAZOLE [Concomitant]
     Dosage: 20 MILLIGRAM
     Route: 048
  7. ENOXAPARIN SODIUM [Concomitant]
     Indication: ANTICOAGULANT THERAPY
     Route: 058
     Dates: start: 20111226
  8. PRIMPERAN TAB [Concomitant]
     Route: 048
  9. DUPHALAC [Concomitant]
     Indication: CONSTIPATION
     Dosage: 10 MILLIGRAM
     Route: 048
     Dates: start: 20111104
  10. KYTRIL [Concomitant]
     Route: 048
  11. LOSARTAN POTASSIUM AND HYDROCHLOROTHIAZIDE [Concomitant]
     Dosage: 50 MILLIGRAM
     Route: 048
  12. PRIMPERAN TAB [Concomitant]
     Indication: NAUSEA
  13. KYTRIL [Concomitant]
     Indication: NAUSEA

REACTIONS (2)
  - SIGMOIDITIS [None]
  - DIVERTICULITIS [None]
